FAERS Safety Report 5149227-4 (Version None)
Quarter: 2006Q4

REPORT INFORMATION
  Report Type: 
  Country: None (occurrence: None)
  Receive Date: 20061113
  Receipt Date: 20050919
  Transmission Date: 20070319
  Serious: No
  Sender: FDA-Public Use
  Company Number: 418269

PATIENT
  Sex: Female

DRUGS (6)
  1. COREG [Suspect]
     Indication: HYPERTENSION
     Dosage: 25MG TWICE PER DAY
     Route: 048
     Dates: start: 20050719
  2. NORVASC [Concomitant]
  3. PRILOSEC [Concomitant]
  4. MAGNESIUM SUPPLEMENT [Concomitant]
  5. DEMADEX [Concomitant]
  6. ALDACTONE [Concomitant]

REACTIONS (1)
  - SCRATCH [None]
